FAERS Safety Report 17931353 (Version 1)
Quarter: 2020Q2

REPORT INFORMATION
  Report Type: Spontaneous
  Country: TR (occurrence: TR)
  Receive Date: 20200623
  Receipt Date: 20200623
  Transmission Date: 20200714
  Serious: Yes (Hospitalization)
  Sender: FDA-Public Use
  Company Number: TR-ALLERGAN-2024091US

PATIENT
  Sex: Male

DRUGS (1)
  1. MORPHINE SULFATE UNK [Suspect]
     Active Substance: MORPHINE SULFATE
     Indication: PRODUCT USED FOR UNKNOWN INDICATION
     Route: 065

REACTIONS (6)
  - Off label use [Unknown]
  - Prevertebral soft tissue swelling of cervical space [Unknown]
  - Drug abuse [Unknown]
  - Crepitations [Unknown]
  - Oropharyngeal pain [Unknown]
  - Subcutaneous emphysema [Unknown]
